FAERS Safety Report 4942338-5 (Version None)
Quarter: 2006Q1

REPORT INFORMATION
  Report Type: 
  Country: None (occurrence: None)
  Receive Date: 20060313
  Receipt Date: 20051228
  Transmission Date: 20060701
  Serious: No
  Sender: FDA-Public Use
  Company Number: US-GLAXOSMITHKLINE-A0587128A

PATIENT
  Age: 80 Year
  Sex: Female

DRUGS (1)
  1. NICORETTE [Suspect]
     Dates: start: 20051227

REACTIONS (4)
  - DENTAL DISCOMFORT [None]
  - GINGIVAL PAIN [None]
  - GINGIVAL ULCERATION [None]
  - PHARMACEUTICAL PRODUCT COMPLAINT [None]
